FAERS Safety Report 8238464-8 (Version None)
Quarter: 2012Q1

REPORT INFORMATION
  Report Type: 
  Country: None (occurrence: None)
  Receive Date: 20120327
  Receipt Date: 20120313
  Transmission Date: 20120608
  Serious: Yes (Other)
  Sender: FDA-Public Use
  Company Number: US-ROCHE-1040810

PATIENT
  Age: 75 Year
  Sex: Male
  Weight: 93.8 kg

DRUGS (4)
  1. PREDNISONE TAB [Suspect]
     Indication: PROSTATE CANCER
     Dosage: DATE OF LAST DOSE PRIOR TO SAE, 27 DEC 2011
     Route: 048
     Dates: start: 20110706, end: 20111227
  2. AVASTIN [Suspect]
     Indication: PROSTATE CANCER
     Dosage: DATE OF LAST DOSE PRIOR TO SAE, 27 DEC 2011
     Route: 042
     Dates: start: 20110706
  3. DOCETAXEL [Suspect]
     Indication: PROSTATE CANCER
     Dosage: DATE OF LAST DOSE PRIOR TO SAE, 27 DEC 2011
     Route: 042
     Dates: start: 20110706
  4. LENALIDOMIDE [Suspect]
     Indication: PROSTATE CANCER
     Dosage: ON DAYS 1-14, DATE OF LAST DOSE PRIOR TO SAE, 04 JAN 2011
     Route: 048
     Dates: start: 20110706

REACTIONS (5)
  - FATIGUE [None]
  - ATRIAL FIBRILLATION [None]
  - OEDEMA PERIPHERAL [None]
  - TRANSIENT ISCHAEMIC ATTACK [None]
  - MUSCULAR WEAKNESS [None]
